FAERS Safety Report 4641650-7 (Version None)
Quarter: 2005Q2

REPORT INFORMATION
  Report Type: 
  Country: None (occurrence: None)
  Receive Date: 20050421
  Receipt Date: 20050414
  Transmission Date: 20051028
  Serious: Yes (Hospitalization)
  Sender: FDA-Public Use
  Company Number: DE-ABBOTT-05P-062-0297523-00

PATIENT
  Sex: Female
  Weight: 42 kg

DRUGS (9)
  1. AKINETON [Suspect]
     Indication: SUICIDE ATTEMPT
     Dates: start: 20050413, end: 20050413
  2. NIPOLEPT 25 [Suspect]
     Indication: SUICIDE ATTEMPT
     Route: 048
     Dates: start: 20050413, end: 20050413
  3. AMISULPRIDE [Suspect]
     Indication: SUICIDE ATTEMPT
     Route: 048
     Dates: start: 20050413, end: 20050413
  4. PIRACETAM [Suspect]
     Indication: SUICIDE ATTEMPT
     Route: 048
     Dates: start: 20050413, end: 20050413
  5. TORSEMIDE [Suspect]
     Indication: SUICIDE ATTEMPT
     Dates: start: 20050413, end: 20050413
  6. RAMIPRIL [Suspect]
     Indication: SUICIDE ATTEMPT
     Dates: start: 20050413, end: 20050413
  7. DIGITOXIN TAB [Suspect]
     Indication: SUICIDE ATTEMPT
     Route: 048
     Dates: start: 20050413, end: 20050413
  8. SPIRONOLACTONE [Suspect]
     Indication: SUICIDE ATTEMPT
     Route: 048
     Dates: start: 20050413, end: 20050413
  9. AXURA [Suspect]
     Indication: SUICIDE ATTEMPT
     Route: 048
     Dates: start: 20050413, end: 20050413

REACTIONS (5)
  - FATIGUE [None]
  - INTENTIONAL MISUSE [None]
  - OVERDOSE [None]
  - PUPILS UNEQUAL [None]
  - SUICIDE ATTEMPT [None]
